FAERS Safety Report 6382198-1 (Version None)
Quarter: 2009Q3

REPORT INFORMATION
  Report Type: 
  Country: None (occurrence: None)
  Receive Date: 20090930
  Receipt Date: 20090922
  Transmission Date: 20100115
  Serious: Yes (Other)
  Sender: FDA-Public Use
  Company Number: IE-AVENTIS-200920308GDDC

PATIENT
  Age: 41 Year
  Sex: Female

DRUGS (14)
  1. FLAGYL [Suspect]
     Indication: SKIN INFECTION
     Route: 048
     Dates: start: 20090812, end: 20090824
  2. CLEXANE [Suspect]
  3. VANCOMYCIN [Suspect]
     Indication: SKIN INFECTION
     Route: 042
     Dates: start: 20090810, end: 20090824
  4. CIPROFLOXACIN HYDROCHLORIDE [Suspect]
     Indication: SKIN INFECTION
     Route: 042
     Dates: start: 20090811, end: 20090812
  5. FLUCLOXACILLIN [Suspect]
     Indication: SKIN INFECTION
     Route: 048
     Dates: start: 20090721, end: 20090728
  6. CLINDAMYCIN [Suspect]
     Route: 048
     Dates: start: 20090805, end: 20090808
  7. CLOPIDOGREL [Concomitant]
  8. ATORVASTATIN [Concomitant]
  9. ASPIRIN [Concomitant]
  10. METFORMIN HYDROCHLORIDE [Concomitant]
     Indication: TYPE 2 DIABETES MELLITUS
  11. PERINDOPRIL [Concomitant]
  12. METOPROLOL SUCCINATE [Concomitant]
  13. LEVEMIR [Concomitant]
     Indication: TYPE 2 DIABETES MELLITUS
     Dosage: DOSE: UNK
  14. NOVORAPID [Concomitant]
     Indication: TYPE 2 DIABETES MELLITUS
     Dosage: DOSE: UNK

REACTIONS (1)
  - STEVENS-JOHNSON SYNDROME [None]
